FAERS Safety Report 16088574 (Version 1)
Quarter: 2019Q1

REPORT INFORMATION
  Report Type: Spontaneous
  Country: US (occurrence: US)
  Receive Date: 20190319
  Receipt Date: 20190319
  Transmission Date: 20190418
  Serious: No
  Sender: FDA-Public Use
  Company Number: US-PFIZER INC-2019114562

PATIENT
  Age: 52 Year
  Sex: Female
  Weight: 108.84 kg

DRUGS (1)
  1. XELJANZ [Suspect]
     Active Substance: TOFACITINIB CITRATE
     Indication: PSORIASIS
     Dosage: 5 MG, 2X/DAY
     Route: 048
     Dates: end: 20190305

REACTIONS (2)
  - Drug ineffective for unapproved indication [Unknown]
  - Psoriasis [Unknown]

NARRATIVE: CASE EVENT DATE: 20190305
